FAERS Safety Report 6329911-7 (Version None)
Quarter: 2009Q3

REPORT INFORMATION
  Report Type: 
  Country: None (occurrence: None)
  Receive Date: 20090826
  Receipt Date: 20090818
  Transmission Date: 20100115
  Serious: Yes (Other)
  Sender: FDA-Public Use
  Company Number: US-GENENTECH-288853

PATIENT

DRUGS (1)
  1. AVASTIN [Suspect]
     Indication: OVARIAN NEOPLASM

REACTIONS (3)
  - INTESTINAL OBSTRUCTION [None]
  - NEUROPATHY PERIPHERAL [None]
  - SINUSITIS [None]
